FAERS Safety Report 6145294-X (Version None)
Quarter: 2009Q2

REPORT INFORMATION
  Report Type: 
  Country: None (occurrence: None)
  Receive Date: 20090406
  Receipt Date: 20090323
  Transmission Date: 20091009
  Serious: Yes (Other)
  Sender: FDA-Public Use
  Company Number: CL-PFIZER INC-2009190873

PATIENT

DRUGS (3)
  1. NORMATOL [Suspect]
     Indication: NEURALGIA
     Dosage: 400 MG, 1X/DAY
     Route: 048
     Dates: start: 20090303
  2. PROLOPA [Concomitant]
     Dosage: UNK
     Route: 048
  3. SIFROL [Concomitant]
     Dosage: UNK
     Route: 048

REACTIONS (3)
  - LETHARGY [None]
  - MUSCULAR WEAKNESS [None]
  - PARKINSON'S DISEASE [None]
